FAERS Safety Report 4272487-9 (Version None)
Quarter: 2004Q1

REPORT INFORMATION
  Report Type: 
  Country: None (occurrence: None)
  Receive Date: 20040115
  Receipt Date: 20040106
  Transmission Date: 20041129
  Serious: Yes (Life-Threatening)
  Sender: FDA-Public Use
  Company Number: WAES 0401NOR00005

PATIENT
  Age: 72 Year
  Sex: Female

DRUGS (5)
  1. FOSAMAX [Suspect]
     Route: 048
     Dates: start: 20030301, end: 20030601
  2. FOSAMAX [Suspect]
     Route: 048
     Dates: start: 20020101, end: 20020101
  3. ASPIRIN AND MAGNESIUM OXIDE [Concomitant]
     Route: 048
  4. CALCIUM CARBONATE AND CHOLECALCIFEROL [Concomitant]
  5. LEVOTHYROXINE SODIUM [Concomitant]
     Indication: HYPOTHYROIDISM
     Route: 048

REACTIONS (3)
  - MUSCLE NECROSIS [None]
  - MUSCULAR WEAKNESS [None]
  - MYOSITIS [None]
